FAERS Safety Report 19158828 (Version 1)
Quarter: 2021Q2

REPORT INFORMATION
  Report Type: Report from Study
  Country: US (occurrence: US)
  Receive Date: 20210420
  Receipt Date: 20210420
  Transmission Date: 20210717
  Serious: Yes (Death, Other)
  Sender: FDA-Public Use
  Company Number: US-EISAI MEDICAL RESEARCH-EC-2021-091449

PATIENT
  Age: 70 Year
  Sex: Female
  Weight: 65.9 kg

DRUGS (7)
  1. IBUPROFEN. [Concomitant]
     Active Substance: IBUPROFEN
     Indication: PAIN
     Dosage: 1.4?0.6 % OPHTHALMIC SOLUTION, ADMINISTER 1?2 DROPS INTO BOTH EYES AS DIRECTED. AS NEEDED
     Route: 047
  2. KEYTRUDA [Concomitant]
     Active Substance: PEMBROLIZUMAB
  3. LENVIMA [Suspect]
     Active Substance: LENVATINIB
     Route: 048
     Dates: start: 2020, end: 20201203
  4. REFRESH CLASSIC [Concomitant]
     Active Substance: POLYVINYL ALCOHOL\POVIDONE
     Indication: PAIN
     Dosage: 1 TABLET 2 (TWO) TIMES A DAY AS NEEDED
     Route: 048
  5. MULTIVITAMINS [Concomitant]
     Active Substance: VITAMINS
     Dosage: 1 TABLET EVERY MORNING
     Route: 048
  6. LENVIMA [Suspect]
     Active Substance: LENVATINIB
     Indication: ENDOMETRIAL CANCER
     Route: 048
     Dates: start: 20200822, end: 2020
  7. WHITE PETROLATUM [Concomitant]
     Active Substance: PETROLATUM
     Indication: PAIN
     Dosage: 0.5 INCHES AT BEDTIME.

REACTIONS (1)
  - Haemoptysis [Fatal]

NARRATIVE: CASE EVENT DATE: 20201125
